FAERS Safety Report 20282714 (Version 1)
Quarter: 2022Q1

REPORT INFORMATION
  Report Type: Spontaneous
  Country: US (occurrence: US)
  Receive Date: 20220103
  Receipt Date: 20220103
  Transmission Date: 20220423
  Serious: No
  Sender: FDA-Public Use
  Company Number: US-TEVA-2021-US-1987016

PATIENT
  Age: 46 Year
  Sex: Female

DRUGS (1)
  1. PRAVASTATIN SODIUM [Suspect]
     Active Substance: PRAVASTATIN SODIUM
     Indication: Blood cholesterol increased
     Route: 065
     Dates: end: 2020

REACTIONS (2)
  - Swollen tongue [Recovered/Resolved]
  - Liver disorder [Unknown]
